FAERS Safety Report 4863886-2 (Version None)
Quarter: 2005Q4

REPORT INFORMATION
  Report Type: 
  Country: None (occurrence: None)
  Receive Date: 20051219
  Receipt Date: 20051202
  Transmission Date: 20060501
  Serious: Yes (Hospitalization)
  Sender: FDA-Public Use
  Company Number: DSA_27489_2005

PATIENT
  Age: 67 Year
  Sex: Female

DRUGS (2)
  1. ENALAPRIL MALEATE AND HYDROCHLOROTHIAZIDE [Suspect]
     Indication: HYPERTENSION
     Dosage: 0.5 DF BID PO
     Route: 048
     Dates: start: 19950101, end: 20051109
  2. BELOC [Concomitant]

REACTIONS (2)
  - GAMMA-GLUTAMYLTRANSFERASE INCREASED [None]
  - PANCREATITIS ACUTE [None]
